FAERS Safety Report 11681776 (Version 1)
Quarter: 2015Q4

REPORT INFORMATION
  Report Type: Report from Study
  Country: US (occurrence: US)
  Receive Date: 20151029
  Receipt Date: 20151029
  Transmission Date: 20160304
  Serious: Yes (Other)
  Sender: FDA-Public Use
  Company Number: US-BAXALTA-2015BLT002329

PATIENT
  Sex: Female

DRUGS (1)
  1. GAMMAGARD LIQUID [Suspect]
     Active Substance: HUMAN IMMUNOGLOBULIN G
     Indication: SELECTIVE IGG SUBCLASS DEFICIENCY
     Dosage: 10 G, EVERY 2 WK
     Route: 058

REACTIONS (5)
  - Depression [Unknown]
  - Blood glucose fluctuation [Unknown]
  - Weight decreased [Unknown]
  - Diabetes mellitus [Unknown]
  - Joint injury [Unknown]
